FAERS Safety Report 7753460-2 (Version None)
Quarter: 2011Q3

REPORT INFORMATION
  Report Type: 
  Country: None (occurrence: None)
  Receive Date: 20110915
  Receipt Date: 20110902
  Transmission Date: 20111222
  Serious: Yes (Hospitalization, Other)
  Sender: FDA-Public Use
  Company Number: US-ELI_LILLY_AND_COMPANY-US201008001108

PATIENT
  Sex: Female
  Weight: 57.143 kg

DRUGS (9)
  1. FORTEO [Suspect]
     Dosage: 20 UG, QD
  2. LISINOPRIL AND HYDROCHLOROTHIAZIDE [Concomitant]
     Indication: BLOOD PRESSURE INCREASED
  3. ASPIRIN [Concomitant]
  4. FORTEO [Suspect]
     Indication: OSTEOPOROSIS
     Dosage: 20 UG, DAILY (1/D)
     Dates: start: 20100601
  5. PREDNISONE [Concomitant]
     Indication: ARTHRITIS
  6. ZOCOR [Concomitant]
  7. CALCIUM CARBONATE [Concomitant]
  8. VITAMIN D [Concomitant]
  9. FORTEO [Suspect]
     Dosage: 20 UG, DAILY (1/D)
     Dates: start: 20101101

REACTIONS (20)
  - HYPOTENSION [None]
  - FLUID INTAKE REDUCED [None]
  - DEHYDRATION [None]
  - HAEMATOCHEZIA [None]
  - PAIN [None]
  - HYPOPHAGIA [None]
  - ABDOMINAL DISCOMFORT [None]
  - COMPRESSION FRACTURE [None]
  - SPINAL COMPRESSION FRACTURE [None]
  - VOMITING [None]
  - HIATUS HERNIA [None]
  - INJECTION SITE PAIN [None]
  - MALAISE [None]
  - DIARRHOEA [None]
  - HEART RATE INCREASED [None]
  - ULCER [None]
  - ULCER HAEMORRHAGE [None]
  - DYSGEUSIA [None]
  - WEIGHT DECREASED [None]
  - GASTROINTESTINAL ULCER HAEMORRHAGE [None]
